FAERS Safety Report 10085931 (Version 1)
Quarter: 2014Q2

REPORT INFORMATION
  Report Type: Spontaneous
  Country: US (occurrence: None)
  Receive Date: 20140416
  Receipt Date: 20140416
  Transmission Date: 20141212
  Serious: Yes (Other)
  Sender: FDA-Public Use
  Company Number: AUR-APL-2014-03355

PATIENT
  Age: 39 Year
  Sex: Female

DRUGS (3)
  1. LAMIVUDINE (LAMIVUDINE) [Suspect]
     Indication: ANTIRETROVIRAL THERAPY
  2. ABACAVIR (ABACAVIR) [Suspect]
     Indication: ANTIRETROVIRAL THERAPY
     Route: 048
  3. KALETRA [Suspect]
     Indication: ANTIRETROVIRAL THERAPY
     Route: 048

REACTIONS (7)
  - Exposure during pregnancy [None]
  - Foetal death [None]
  - Dialysis [None]
  - Blood pressure increased [None]
  - Blood glucose increased [None]
  - Chronic obstructive pulmonary disease [None]
  - Superior vena cava syndrome [None]
